FAERS Safety Report 7364410-5 (Version None)
Quarter: 2011Q1

REPORT INFORMATION
  Report Type: 
  Country: None (occurrence: None)
  Receive Date: 20110321
  Receipt Date: 20110223
  Transmission Date: 20110831
  Serious: Yes (Death, Other)
  Sender: FDA-Public Use
  Company Number: US-BAYER-201011334NA

PATIENT
  Sex: Male

DRUGS (6)
  1. TORSEMIDE [Concomitant]
     Indication: PRODUCT USED FOR UNKNOWN INDICATION
  2. TRASYLOL [Suspect]
     Indication: CORONARY ARTERY BYPASS
     Dates: start: 20071103
  3. HEXTEND [Concomitant]
     Indication: PRODUCT USED FOR UNKNOWN INDICATION
  4. LASIX [Concomitant]
     Indication: PRODUCT USED FOR UNKNOWN INDICATION
  5. ZAROXOLYN [Concomitant]
     Indication: PRODUCT USED FOR UNKNOWN INDICATION
  6. RED BLOOD CELLS [Concomitant]
     Indication: PRODUCT USED FOR UNKNOWN INDICATION

REACTIONS (14)
  - RENAL FAILURE [None]
  - ORGAN FAILURE [None]
  - INJURY [None]
  - CARDIAC DISORDER [None]
  - UNEVALUABLE EVENT [None]
  - CEREBROVASCULAR ACCIDENT [None]
  - RENAL INJURY [None]
  - FEAR [None]
  - DEPRESSION [None]
  - PAIN [None]
  - ANHEDONIA [None]
  - DEATH [None]
  - ANXIETY [None]
  - RENAL IMPAIRMENT [None]
